FAERS Safety Report 11634765 (Version 1)
Quarter: 2015Q4

REPORT INFORMATION
  Report Type: Spontaneous
  Country: NL (occurrence: NL)
  Receive Date: 20151015
  Receipt Date: 20151015
  Transmission Date: 20160304
  Serious: Yes (Hospitalization)
  Sender: FDA-Public Use
  Company Number: NL-ACORDA-ACO_118240_2015

PATIENT
  Sex: Female

DRUGS (4)
  1. QUTENZA [Suspect]
     Active Substance: CAPSAICIN
     Dosage: UNK, UNKNOWN FREQ.
     Route: 065
  2. OXYCONTIN [Concomitant]
     Active Substance: OXYCODONE HYDROCHLORIDE
     Indication: PRODUCT USED FOR UNKNOWN INDICATION
  3. QUTENZA [Suspect]
     Active Substance: CAPSAICIN
     Indication: NEURALGIA
     Dosage: UNK UNK, UNKNOWN FREQ.
     Route: 065
  4. KETANEST [Suspect]
     Active Substance: KETAMINE HYDROCHLORIDE
     Indication: APPLICATION SITE PAIN
     Dosage: 5 MG/ML AT FIRST 1.2 ML/HOUR, THEN 0.6 ML/HOUR
     Route: 042
     Dates: start: 20150901, end: 20150902

REACTIONS (6)
  - Nausea [Unknown]
  - Diarrhoea [Unknown]
  - Application site pain [Recovering/Resolving]
  - Application site pain [Unknown]
  - Peripheral swelling [Recovered/Resolved]
  - Application site pruritus [Unknown]

NARRATIVE: CASE EVENT DATE: 20150901
